FAERS Safety Report 6388739-2 (Version None)
Quarter: 2009Q4

REPORT INFORMATION
  Report Type: 
  Country: None (occurrence: None)
  Receive Date: 20091002
  Receipt Date: 20091002
  Transmission Date: 20100525
  Serious: Yes (Other)
  Sender: FDA-Public Use
  Company Number: None

PATIENT
  Sex: Male

DRUGS (1)
  1. DEPAKOTE ER [Suspect]
     Indication: MOOD ALTERED
     Dosage: 500/750/1500MG QAM/QPM/QHS PO
     Route: 048

REACTIONS (1)
  - HYPERAMMONAEMIA [None]
